FAERS Safety Report 20601947 (Version 1)
Quarter: 2022Q1

REPORT INFORMATION
  Report Type: Spontaneous
  Country: RO (occurrence: None)
  Receive Date: 20220316
  Receipt Date: 20220316
  Transmission Date: 20220423
  Serious: Yes (Other)
  Sender: FDA-Public Use
  Company Number: RO-009507513-2202ROU006882

PATIENT
  Age: 57 Year
  Sex: Female

DRUGS (3)
  1. CARBOPLATIN [Suspect]
     Active Substance: CARBOPLATIN
     Indication: Lung neoplasm
     Dosage: AREA UNDER THE CURVE (AUC) 6
     Route: 065
  2. PACLITAXEL [Suspect]
     Active Substance: PACLITAXEL
     Indication: Lung neoplasm
     Dosage: 200 MILLIGRAM PER SQUARE METER
     Route: 065
  3. PEMBROLIZUMAB [Suspect]
     Active Substance: PEMBROLIZUMAB
     Indication: Lung neoplasm
     Dosage: 200 MILLIGRAM, EVERY 3 WEEKS
     Route: 065

REACTIONS (5)
  - Hypothyroidism [Unknown]
  - Cough [Unknown]
  - Erythema [Unknown]
  - Dyspnoea [Unknown]
  - Drug hypersensitivity [Unknown]
